FAERS Safety Report 17828247 (Version 2)
Quarter: 2020Q3

REPORT INFORMATION
  Report Type: Spontaneous
  Country: FR (occurrence: FR)
  Receive Date: 20200527
  Receipt Date: 20200902
  Transmission Date: 20201102
  Serious: Yes (Death, Hospitalization, Other)
  Sender: FDA-Public Use
  Company Number: FR-MYLANLABS-2020M1052110

PATIENT
  Age: 93 Year
  Sex: Male

DRUGS (9)
  1. METHYLENE BLUE. [Suspect]
     Active Substance: METHYLENE BLUE
     Indication: SHOCK
     Route: 065
  2. LERCANIDIPINE [Interacting]
     Active Substance: LERCANIDIPINE
     Indication: HYPERTENSION
     Dosage: 30 MILLIGRAM, 3 TABLETS OF 10MG
     Route: 048
  3. NOREPINEPHRINE. [Suspect]
     Active Substance: NOREPINEPHRINE
     Dosage: UP TO 30 MG/HOUR, CONTINUOUS INFUSION
  4. COVERAM [Interacting]
     Active Substance: AMLODIPINE\PERINDOPRIL
     Indication: HYPERTENSION
     Dosage: 40 MILLIGRAM, 4 TABLETS OF 10MG
     Route: 048
  5. NOREPINEPHRINE. [Suspect]
     Active Substance: NOREPINEPHRINE
     Indication: SHOCK
     Dosage: UP TO 2 MG/HOUR, CONTINUOUS INFUSION
  6. INSULIN GLARGINE [Suspect]
     Active Substance: INSULIN GLARGINE
     Indication: SHOCK
     Route: 065
  7. FLUINDIONE [Suspect]
     Active Substance: FLUINDIONE
     Indication: HYPERTENSION
     Dosage: 100 MILLIGRAM, 5 TABLETS OF 20MG
     Route: 048
  8. CALCIUM CHLORIDE. [Suspect]
     Active Substance: CALCIUM CHLORIDE
     Indication: SHOCK
     Route: 065
  9. DOBUTAMINE [Suspect]
     Active Substance: DOBUTAMINE HYDROCHLORIDE
     Indication: SHOCK
     Dosage: 20 MICROGRAM/KILOGRAM, QMINUTE
     Route: 065

REACTIONS (14)
  - Hypothermia [Fatal]
  - Seizure [Fatal]
  - Renal failure [Fatal]
  - Hypotension [Fatal]
  - Intentional overdose [Fatal]
  - Toxicity to various agents [Fatal]
  - Hepatic failure [Fatal]
  - Pneumonia aspiration [Fatal]
  - Cholestasis [Fatal]
  - Drug interaction [Fatal]
  - Shock [Fatal]
  - Acute respiratory distress syndrome [Fatal]
  - Multiple organ dysfunction syndrome [Fatal]
  - Drug ineffective [Fatal]
